FAERS Safety Report 8723785 (Version 2)
Quarter: 2013Q4

REPORT INFORMATION
  Report Type: Spontaneous
  Country: US (occurrence: US)
  Receive Date: 20120815
  Receipt Date: 20131101
  Transmission Date: 20140711
  Serious: No
  Sender: FDA-Public Use
  Company Number: US-009507513-1208USA001676

PATIENT
  Sex: 0

DRUGS (1)
  1. TICE BCG LIVE [Suspect]
     Dosage: UNK
     Route: 062
     Dates: start: 20120802

REACTIONS (2)
  - Exposure via direct contact [Unknown]
  - No adverse event [Unknown]
